FAERS Safety Report 9626720 (Version 2)
Quarter: 2015Q3

REPORT INFORMATION
  Report Type: Report from Study
  Country: US (occurrence: US)
  Receive Date: 20131016
  Receipt Date: 20150928
  Transmission Date: 20151125
  Serious: Yes (Hospitalization)
  Sender: FDA-Public Use
  Company Number: US-ROCHE-1288409

PATIENT
  Age: 48 Year
  Sex: Female
  Weight: 77.18 kg

DRUGS (4)
  1. ALBUTEROL SULFATE. [Concomitant]
     Active Substance: ALBUTEROL SULFATE
     Dosage: ^2.5 MG/3ML (0.083%) NEBU^
     Route: 065
  2. ADVAIR DISKUS [Concomitant]
     Active Substance: FLUTICASONE PROPIONATE\SALMETEROL XINAFOATE
     Dosage: ^500-50 MCG PER DOSE, 1 PUFF^
     Route: 065
  3. MEDROL [Concomitant]
     Active Substance: METHYLPREDNISOLONE
     Dosage: ^FOR 5 DAYS^
     Route: 065
  4. XOLAIR [Suspect]
     Active Substance: OMALIZUMAB
     Indication: ASTHMA
     Route: 058

REACTIONS (8)
  - Chest pain [Unknown]
  - Lung hyperinflation [Not Recovered/Not Resolved]
  - Peripheral swelling [Unknown]
  - Oedema peripheral [Unknown]
  - Dyspnoea exertional [Unknown]
  - Wheezing [Unknown]
  - Breath sounds abnormal [Unknown]
  - Asthma [Unknown]

NARRATIVE: CASE EVENT DATE: 20130930
